FAERS Safety Report 24427441 (Version 1)
Quarter: 2024Q4

REPORT INFORMATION
  Report Type: Spontaneous
  Country: HR (occurrence: HR)
  Receive Date: 20241011
  Receipt Date: 20241011
  Transmission Date: 20250115
  Serious: Yes (Hospitalization, Other)
  Sender: ROCHE
  Company Number: HR-ROCHE-10000102897

PATIENT
  Age: 60 Year
  Sex: Male

DRUGS (6)
  1. OBINUTUZUMAB [Suspect]
     Active Substance: OBINUTUZUMAB
     Indication: Non-Hodgkin^s lymphoma
     Dosage: 2 CYCLE ON /APR/2020, THIRD CYCLE ON APR/2020, FOURTH CYCLE ON MAY/2020 AND FIFTH CYCLE ON /JUN/2020
     Route: 065
     Dates: start: 202003
  2. CYCLOPHOSPHAMIDE [Suspect]
     Active Substance: CYCLOPHOSPHAMIDE
     Indication: Non-Hodgkin^s lymphoma
     Dosage: 1 CYCLE ON /MAR/2020, 2 CYCLE ON /APR/2020, THIRD CYCLE ON APR/2020, FOURTH CYCLE ON MAY/2020 AND FI
     Route: 048
     Dates: start: 202002
  3. PREDNISONE [Suspect]
     Active Substance: PREDNISONE
     Indication: Non-Hodgkin^s lymphoma
     Dosage: 1 CYCLE ON /MAR/2020, 2 CYCLE ON /APR/2020, THIRD CYCLE ON APR/2020, FOURTH CYCLE ON MAY/2020 AND FI
     Route: 065
     Dates: start: 202002
  4. DOXORUBICIN HYDROCHLORIDE [Suspect]
     Active Substance: DOXORUBICIN HYDROCHLORIDE
     Indication: Non-Hodgkin^s lymphoma
     Dosage: 1 CYCLE ON /MAR/2020, 2 CYCLE ON /APR/2020, THIRD CYCLE ON APR/2020, FOURTH CYCLE ON MAY/2020 AND FI
     Route: 065
     Dates: start: 202002
  5. VINCRISTINE SULFATE [Suspect]
     Active Substance: VINCRISTINE SULFATE
     Indication: Non-Hodgkin^s lymphoma
     Dosage: 1 CYCLE ON /MAR/2020, 2 CYCLE ON /APR/2020, THIRD CYCLE ON APR/2020, FOURTH CYCLE ON MAY/2020 AND FI
     Route: 065
     Dates: start: 202002
  6. RAMIPRIL [Concomitant]
     Active Substance: RAMIPRIL
     Indication: Hypertension

REACTIONS (3)
  - Febrile neutropenia [Recovered/Resolved]
  - COVID-19 [Unknown]
  - Disease progression [Unknown]

NARRATIVE: CASE EVENT DATE: 20210101
